FAERS Safety Report 11832245 (Version 3)
Quarter: 2016Q2

REPORT INFORMATION
  Report Type: Spontaneous
  Country: US (occurrence: US)
  Receive Date: 20151214
  Receipt Date: 20160512
  Transmission Date: 20160815
  Serious: Yes (Hospitalization, Other)
  Sender: FDA-Public Use
  Company Number: US-ELI_LILLY_AND_COMPANY-US201512001018

PATIENT
  Age: 60 Year
  Sex: Male
  Weight: 98.41 kg

DRUGS (19)
  1. AXIRON [Suspect]
     Active Substance: TESTOSTERONE
     Indication: BLOOD TESTOSTERONE DECREASED
  2. MOMETASONE [Concomitant]
     Active Substance: MOMETASONE
     Indication: HYPERSENSITIVITY
     Dosage: 100 UG, QD
     Route: 045
     Dates: start: 201312
  3. AXIRON [Suspect]
     Active Substance: TESTOSTERONE
     Indication: ANDROGEN REPLACEMENT THERAPY
     Dosage: 30 MG, QD
     Route: 061
     Dates: start: 20120216, end: 20140402
  4. AXIRON [Suspect]
     Active Substance: TESTOSTERONE
     Indication: ASTHENIA
  5. FLUOXETINE [Concomitant]
     Active Substance: FLUOXETINE HYDROCHLORIDE
     Indication: ANTIDEPRESSANT THERAPY
     Dosage: 40 MG, QD
     Route: 065
     Dates: start: 201201, end: 2013
  6. DOCUSATE [Concomitant]
     Active Substance: DOCUSATE
     Indication: PRODUCT USED FOR UNKNOWN INDICATION
     Dosage: 100 MG, BID
     Route: 048
  7. ATORVASTATIN [Concomitant]
     Active Substance: ATORVASTATIN
     Indication: BLOOD CHOLESTEROL INCREASED
     Dosage: 40 MG, EACH EVENING
     Route: 048
     Dates: start: 2006
  8. ARICEPT [Concomitant]
     Active Substance: DONEPEZIL HYDROCHLORIDE
     Indication: PRODUCT USED FOR UNKNOWN INDICATION
     Dosage: 5 MG, EACH EVENING
     Route: 048
  9. AMIODARONE [Concomitant]
     Active Substance: AMIODARONE
     Indication: ARRHYTHMIA
     Dosage: 200 MG, BID
     Route: 065
     Dates: start: 201201, end: 2013
  10. CARVEDILOL. [Concomitant]
     Active Substance: CARVEDILOL
     Indication: BLOOD PRESSURE ABNORMAL
     Dosage: 6.25 MG, BID
     Route: 048
     Dates: start: 201210
  11. COUMADIN [Concomitant]
     Active Substance: WARFARIN SODIUM
     Indication: ATRIAL FIBRILLATION
     Dosage: UNK
     Dates: end: 201401
  12. ALLOPURINOL. [Concomitant]
     Active Substance: ALLOPURINOL
     Indication: GOUT
     Dosage: 300 MG, QD
     Route: 048
     Dates: start: 1995
  13. BUPROPION. [Concomitant]
     Active Substance: BUPROPION
     Indication: ANTIDEPRESSANT THERAPY
     Dosage: 300 MG, QD
     Route: 048
     Dates: start: 2000
  14. LEVOTHYROXINE. [Concomitant]
     Active Substance: LEVOTHYROXINE
     Indication: THYROID DISORDER
     Dosage: 75 UG, QD
     Route: 048
     Dates: start: 201104
  15. VASCEPA [Concomitant]
     Active Substance: ICOSAPENT ETHYL
     Indication: PRODUCT USED FOR UNKNOWN INDICATION
     Dosage: 2 G, BID
     Route: 048
  16. CRESTOR [Concomitant]
     Active Substance: ROSUVASTATIN CALCIUM
     Indication: HYPERCHOLESTEROLAEMIA
     Dosage: 20 MG, QD
     Route: 065
     Dates: start: 201201
  17. ASPIRIN                            /00002701/ [Concomitant]
     Active Substance: ASPIRIN
     Indication: ANTICOAGULANT THERAPY
     Dosage: 81 MG, QD
     Route: 048
     Dates: start: 201212
  18. SPIRONOLACTONE. [Concomitant]
     Active Substance: SPIRONOLACTONE
     Indication: BLOOD PRESSURE ABNORMAL
     Dosage: UNK UNK, UNKNOWN
     Route: 065
     Dates: start: 201401
  19. LASIX [Concomitant]
     Active Substance: FUROSEMIDE
     Indication: PRODUCT USED FOR UNKNOWN INDICATION
     Dosage: 40 MG, EACH MORNING
     Route: 048

REACTIONS (4)
  - Atrial fibrillation [Unknown]
  - Acute myocardial infarction [Unknown]
  - Cerebral infarction [Not Recovered/Not Resolved]
  - Carotid artery stenosis [Unknown]

NARRATIVE: CASE EVENT DATE: 20130611
